FAERS Safety Report 5079419-4 (Version None)
Quarter: 2006Q3

REPORT INFORMATION
  Report Type: 
  Country: None (occurrence: None)
  Receive Date: 20060814
  Receipt Date: 20060801
  Transmission Date: 20061208
  Serious: Yes (Other)
  Sender: FDA-Public Use
  Company Number: JP-JNJFOC-20060702633

PATIENT
  Age: 69 Year
  Sex: Female

DRUGS (1)
  1. ITRACONAZOLE [Suspect]
     Indication: NAIL TINEA
     Route: 048
     Dates: start: 20060615, end: 20060621

REACTIONS (3)
  - GENERALISED OEDEMA [None]
  - OEDEMA [None]
  - WEIGHT INCREASED [None]
